FAERS Safety Report 8273516 (Version 4)
Quarter: 2014Q3

REPORT INFORMATION
  Report Type: Spontaneous
  Country: US (occurrence: US)
  Receive Date: 20111202
  Receipt Date: 20140912
  Transmission Date: 20150326
  Serious: Yes (Hospitalization, Other)
  Sender: FDA-Public Use
  Company Number: US-ASTRAZENECA-2011SE72020

PATIENT
  Age: 43 Year
  Sex: Female
  Weight: 65.3 kg

DRUGS (19)
  1. NEXIUM [Suspect]
     Active Substance: ESOMEPRAZOLE MAGNESIUM
     Indication: DYSPEPSIA
     Route: 048
  2. OMEPRAZOLE. [Suspect]
     Active Substance: OMEPRAZOLE
     Indication: DYSPEPSIA
     Route: 048
     Dates: start: 201406
  3. SEROQUEL XR [Suspect]
     Active Substance: QUETIAPINE FUMARATE
     Indication: BIPOLAR I DISORDER
     Dosage: ONE HALF 300 MG, TWO TIMES A DAY
     Route: 048
     Dates: start: 2014
  4. XANAX [Concomitant]
     Active Substance: ALPRAZOLAM
     Indication: ANXIETY
  5. PERCOCET [Concomitant]
     Active Substance: ACETAMINOPHEN\OXYCODONE HYDROCHLORIDE
     Indication: OSTEOARTHRITIS
     Dosage: 10/325 MILLIGRAMS AS REQUIRED
     Dates: start: 2013
  6. PROTONIX [Concomitant]
     Active Substance: PANTOPRAZOLE SODIUM
     Route: 042
  7. PERCOCET [Concomitant]
     Active Substance: ACETAMINOPHEN\OXYCODONE HYDROCHLORIDE
     Indication: BREAKTHROUGH PAIN
     Dosage: 10/325 MILLIGRAMS AS REQUIRED
     Dates: start: 2013
  8. PERCOCET [Concomitant]
     Active Substance: ACETAMINOPHEN\OXYCODONE HYDROCHLORIDE
     Indication: EXOSTOSIS
     Dosage: 10/325 MILLIGRAMS AS REQUIRED
     Dates: start: 2013
  9. ASPIRIN. [Concomitant]
     Active Substance: ASPIRIN
  10. PROTONIX [Concomitant]
     Active Substance: PANTOPRAZOLE SODIUM
     Route: 041
  11. EXCEDRIN [Concomitant]
     Active Substance: ACETAMINOPHEN\ASPIRIN\CAFFEINE
  12. XANAX [Concomitant]
     Active Substance: ALPRAZOLAM
     Indication: PANIC ATTACK
  13. NEXIUM [Suspect]
     Active Substance: ESOMEPRAZOLE MAGNESIUM
     Indication: DYSPEPSIA
     Route: 048
  14. SEROQUEL XR [Suspect]
     Active Substance: QUETIAPINE FUMARATE
     Indication: BIPOLAR I DISORDER
     Route: 048
     Dates: start: 201406, end: 2014
  15. PROTONIX [Concomitant]
     Active Substance: PANTOPRAZOLE SODIUM
     Route: 042
  16. LAMICTAL [Concomitant]
     Active Substance: LAMOTRIGINE
     Dates: start: 2014
  17. IBUPROFEN. [Concomitant]
     Active Substance: IBUPROFEN
  18. PHENERGAN [Concomitant]
     Active Substance: PROMETHAZINE HYDROCHLORIDE
     Indication: NAUSEA
     Dosage: AS REQUIRED
  19. PERCOCET [Concomitant]
     Active Substance: ACETAMINOPHEN\OXYCODONE HYDROCHLORIDE
     Indication: INTERVERTEBRAL DISC DEGENERATION
     Dosage: 10/325 MILLIGRAMS AS REQUIRED
     Dates: start: 2013

REACTIONS (21)
  - Osteoarthritis [Unknown]
  - Oesophageal pain [Unknown]
  - Vomiting [Unknown]
  - Gastrointestinal ulcer [Unknown]
  - Migraine [Unknown]
  - Drug ineffective [Not Recovered/Not Resolved]
  - Perforated ulcer [Unknown]
  - Asthenia [Unknown]
  - Pharyngeal ulceration [Unknown]
  - Intentional product misuse [Not Recovered/Not Resolved]
  - Gastric ulcer haemorrhage [Recovered/Resolved]
  - Back pain [Unknown]
  - Adverse event [Unknown]
  - General physical health deterioration [Recovered/Resolved]
  - Haemorrhage [Recovered/Resolved]
  - Fatigue [Unknown]
  - Dyspepsia [Unknown]
  - Vomiting [Unknown]
  - Anaemia [Unknown]
  - Bipolar disorder [Not Recovered/Not Resolved]
  - Choking sensation [Unknown]

NARRATIVE: CASE EVENT DATE: 2010
